FAERS Safety Report 9709957 (Version 1)
Quarter: 2013Q4

REPORT INFORMATION
  Report Type: Spontaneous
  Country: FR (occurrence: FR)
  Receive Date: 20131126
  Receipt Date: 20131126
  Transmission Date: 20140711
  Serious: Yes (Hospitalization)
  Sender: FDA-Public Use
  Company Number: FR-JNJFOC-20131112098

PATIENT
  Age: 80 Year
  Sex: Male

DRUGS (6)
  1. XARELTO [Suspect]
     Indication: PRODUCT USED FOR UNKNOWN INDICATION
     Route: 048
     Dates: start: 20130801, end: 20130830
  2. PRAVADUAL [Suspect]
     Indication: PROPHYLAXIS
     Route: 048
     Dates: start: 20130801, end: 20130830
  3. BISOPROLOL HEMIFUMARATE [Concomitant]
     Route: 065
  4. AMLODIPINE W/ OLMESARTAN [Concomitant]
     Route: 065
  5. XATRAL [Concomitant]
     Route: 065
  6. HAVLANE [Concomitant]
     Route: 065

REACTIONS (5)
  - Haematemesis [Recovered/Resolved]
  - Melaena [Recovered/Resolved]
  - Anaemia [Recovered/Resolved]
  - Malaise [Recovered/Resolved]
  - Gastric ulcer [Recovered/Resolved]
